FAERS Safety Report 4474109-0 (Version None)
Quarter: 2004Q4

REPORT INFORMATION
  Report Type: 
  Country: None (occurrence: None)
  Receive Date: 20041008
  Receipt Date: 20040923
  Transmission Date: 20050328
  Serious: Yes (Life-Threatening, Hospitalization)
  Sender: FDA-Public Use
  Company Number: 02P-062-0202920-02

PATIENT
  Age: 56 Year
  Sex: Male
  Weight: 82 kg

DRUGS (7)
  1. HUMIRA [Suspect]
     Indication: RHEUMATOID ARTHRITIS
     Dosage: 1 IN 2 WK, SUBCUTANEOUS
     Route: 058
     Dates: start: 20001128, end: 20021114
  2. CELECOXIB [Concomitant]
  3. ACETYLSALICYLIC ACID [Concomitant]
  4. CARDACE [Concomitant]
  5. LANSOPRAZOLE [Concomitant]
  6. DIDROKIT [Concomitant]
  7. COLOXYL WITH DANTHRON [Concomitant]

REACTIONS (14)
  - ABNORMAL FAECES [None]
  - C-REACTIVE PROTEIN INCREASED [None]
  - CARDIAC TAMPONADE [None]
  - DYSPNOEA [None]
  - FALSE POSITIVE LABORATORY RESULT [None]
  - INFLAMMATION [None]
  - OEDEMA PERIPHERAL [None]
  - PERICARDIAL EFFUSION [None]
  - PERICARDIAL HAEMORRHAGE [None]
  - PLEURAL EFFUSION [None]
  - PULMONARY CONGESTION [None]
  - PURULENT PERICARDITIS [None]
  - RED BLOOD CELLS URINE POSITIVE [None]
  - SALMONELLA SEPSIS [None]
